FAERS Safety Report 4521334-6 (Version None)
Quarter: 2004Q4

REPORT INFORMATION
  Report Type: 
  Country: None (occurrence: None)
  Receive Date: 20041208
  Receipt Date: 20041126
  Transmission Date: 20050328
  Serious: Yes (Hospitalization)
  Sender: FDA-Public Use
  Company Number: PHRM2004FR03489

PATIENT
  Age: 1 Hour
  Sex: Male
  Weight: 3 kg

DRUGS (8)
  1. ZADITEN [Suspect]
     Dosage: UNK, UNK
     Route: 064
     Dates: end: 20041022
  2. SERETIDE [Suspect]
     Dosage: UNK, UNK
     Route: 064
     Dates: end: 20041022
  3. AERIUS [Suspect]
     Dosage: UNK, UNK
     Route: 064
     Dates: end: 20041022
  4. AERIUS [Suspect]
     Route: 064
  5. BRONCHODUAL [Suspect]
     Dosage: UNK, UNK
     Route: 064
     Dates: end: 20041022
  6. FLIXONASE [Suspect]
     Dosage: UNK, UNK
     Route: 064
     Dates: end: 20041022
  7. TELFAST [Suspect]
     Route: 064
  8. TELFAST [Suspect]
     Dosage: UNK, UNK
     Route: 064
     Dates: end: 20041022

REACTIONS (7)
  - COARCTATION OF THE AORTA [None]
  - CONGENITAL CARDIOVASCULAR ANOMALY [None]
  - CONGENITAL VENTRICULAR SEPTAL DEFECT [None]
  - DRUG EXPOSURE DURING PREGNANCY [None]
  - GASTROINTESTINAL MALFORMATION [None]
  - OESOPHAGEAL ATRESIA [None]
  - SALIVARY HYPERSECRETION [None]
